FAERS Safety Report 11402371 (Version 1)
Quarter: 2015Q3

REPORT INFORMATION
  Report Type: Spontaneous
  Country: US (occurrence: US)
  Receive Date: 20150821
  Receipt Date: 20150821
  Transmission Date: 20151125
  Serious: No
  Sender: FDA-Public Use
  Company Number: US-ROCHE-1337162

PATIENT
  Sex: Male

DRUGS (10)
  1. RIBAVIRIN. [Suspect]
     Active Substance: RIBAVIRIN
     Dosage: FOR 2 WEEKS
     Route: 065
     Dates: start: 2011
  2. PEGASYS [Suspect]
     Active Substance: PEGINTERFERON ALFA-2A
     Route: 058
     Dates: start: 20140131
  3. TELAPREVIR [Suspect]
     Active Substance: TELAPREVIR
     Indication: CHRONIC HEPATITIS C
     Route: 065
     Dates: start: 2012
  4. PEGASYS [Suspect]
     Active Substance: PEGINTERFERON ALFA-2A
     Indication: CHRONIC HEPATITIS C
     Route: 065
     Dates: start: 2003
  5. PEGASYS [Suspect]
     Active Substance: PEGINTERFERON ALFA-2A
     Dosage: FOR 2 WEEKS
     Route: 065
     Dates: start: 2011
  6. PEGASYS [Suspect]
     Active Substance: PEGINTERFERON ALFA-2A
     Route: 065
     Dates: start: 2012
  7. RIBAVIRIN. [Suspect]
     Active Substance: RIBAVIRIN
     Route: 065
     Dates: start: 2012
  8. SOVALDI [Suspect]
     Active Substance: SOFOSBUVIR
     Indication: CHRONIC HEPATITIS C
     Route: 065
     Dates: start: 20140131
  9. RIBAVIRIN. [Suspect]
     Active Substance: RIBAVIRIN
     Indication: CHRONIC HEPATITIS C
     Dosage: FOR 10 WEEKS
     Route: 065
     Dates: start: 2003
  10. RIBAVIRIN. [Suspect]
     Active Substance: RIBAVIRIN
     Dosage: FOR 12 WEEKS IN DIVIDED DOSAGE 600/600
     Route: 065
     Dates: start: 20140131

REACTIONS (3)
  - Therapy responder [Unknown]
  - Eye pruritus [Recovered/Resolved]
  - Hypothyroidism [Unknown]

NARRATIVE: CASE EVENT DATE: 2003
